FAERS Safety Report 9108569 (Version 1)
Quarter: 2013Q1

REPORT INFORMATION
  Report Type: Spontaneous
  Country: US (occurrence: US)
  Receive Date: 20130222
  Receipt Date: 20130222
  Transmission Date: 20140127
  Serious: Yes (Hospitalization)
  Sender: FDA-Public Use
  Company Number: US-BAYER-2013-021664

PATIENT
  Age: 35 Year
  Sex: Female

DRUGS (14)
  1. GIANVI [Suspect]
     Dosage: UNK
     Dates: start: 20110712, end: 20121107
  2. GIANVI [Suspect]
     Dosage: UNK
     Dates: start: 20111118
  3. GIANVI [Suspect]
     Dosage: UNK
     Dates: start: 20120109
  4. GIANVI [Suspect]
     Dosage: UNK
     Dates: start: 20120309
  5. GIANVI [Suspect]
     Dosage: UNK
     Dates: start: 20120411
  6. GIANVI [Suspect]
     Dosage: UNK
     Dates: start: 20120512
  7. GIANVI [Suspect]
     Dosage: UNK
     Dates: start: 20120811
  8. GIANVI [Suspect]
     Dosage: UNK
     Dates: start: 20120912
  9. GIANVI [Suspect]
     Dosage: UNK
     Dates: start: 20121026
  10. GIANVI [Suspect]
     Dosage: UNK
     Dates: start: 20121107
  11. TORADOL [Concomitant]
  12. ZOFRAN [Concomitant]
  13. PERCOCET [Concomitant]
     Indication: PLEURITIC PAIN
  14. FISH OIL [Concomitant]

REACTIONS (2)
  - Pulmonary embolism [None]
  - Pulmonary infarction [None]
